FAERS Safety Report 6029478-7 (Version None)
Quarter: 2009Q1

REPORT INFORMATION
  Report Type: 
  Country: None (occurrence: None)
  Receive Date: 20090105
  Receipt Date: 20090105
  Transmission Date: 20090719
  Serious: No
  Sender: FDA-Public Use
  Company Number: None

PATIENT
  Age: 63 Year
  Sex: Male

DRUGS (1)
  1. CLOBETASOL PROPIONATE [Suspect]
     Indication: ECZEMA
     Dosage: TWICE DAILY/ TOPICAL
     Route: 061
     Dates: start: 20081216

REACTIONS (5)
  - DISEASE RECURRENCE [None]
  - DRUG INEFFECTIVE [None]
  - ECZEMA [None]
  - PRODUCT QUALITY ISSUE [None]
  - THERAPEUTIC RESPONSE UNEXPECTED WITH DRUG SUBSTITUTION [None]
